FAERS Safety Report 6781860-6 (Version None)
Quarter: 2010Q2

REPORT INFORMATION
  Report Type: 
  Country: None (occurrence: None)
  Receive Date: 20100621
  Receipt Date: 20100616
  Transmission Date: 20101027
  Serious: Yes (Death, Other)
  Sender: FDA-Public Use
  Company Number: PHHY2010BR39514

PATIENT
  Age: 31 Year
  Sex: Male

DRUGS (4)
  1. CYCLOSPORINE [Suspect]
     Indication: RENAL TRANSPLANT
     Dosage: 150 MG/DAY
  2. AZATHIOPRINE [Suspect]
     Indication: RENAL TRANSPLANT
     Dosage: 200 MG/DAY
  3. PREDNISONE [Suspect]
     Indication: RENAL TRANSPLANT
     Dosage: 60 MG/DAY
  4. PREDNISONE [Suspect]
     Dosage: 10 MG/DAY

REACTIONS (22)
  - ABDOMINAL PAIN [None]
  - AMERICAN TRYPANOSOMIASIS [None]
  - ASTHENIA [None]
  - BLOODY DISCHARGE [None]
  - BONE MARROW TOXICITY [None]
  - CHRONIC ALLOGRAFT NEPHROPATHY [None]
  - COMPLICATIONS OF TRANSPLANTED KIDNEY [None]
  - DECREASED APPETITE [None]
  - DIABETIC COMPLICATION [None]
  - HAEMODIALYSIS [None]
  - HYPERTENSIVE CARDIOMYOPATHY [None]
  - HYPOGLYCAEMIA [None]
  - KIDNEY TRANSPLANT REJECTION [None]
  - LAPAROTOMY [None]
  - OLIGURIA [None]
  - PULMONARY HAEMATOMA [None]
  - PYREXIA [None]
  - RENAL IMPAIRMENT [None]
  - RENAL VASCULITIS [None]
  - TACHYCARDIA [None]
  - TUBULOINTERSTITIAL NEPHRITIS [None]
  - URETERIC DILATATION [None]
